FAERS Safety Report 8180349-X (Version None)
Quarter: 2012Q1

REPORT INFORMATION
  Report Type: 
  Country: None (occurrence: None)
  Receive Date: 20120302
  Receipt Date: 20120229
  Transmission Date: 20120608
  Serious: Yes (Other)
  Sender: FDA-Public Use
  Company Number: US-PFIZER INC-2012054666

PATIENT
  Sex: Female

DRUGS (2)
  1. SOLU-MEDROL [Suspect]
     Indication: RASH
     Dosage: 125 MG, SINGLE DOSE
     Dates: start: 20120205, end: 20120205
  2. SOLU-MEDROL [Suspect]
     Indication: URTICARIA

REACTIONS (4)
  - DYSPNOEA [None]
  - NERVOUSNESS [None]
  - FEELING HOT [None]
  - FLUSHING [None]
